FAERS Safety Report 9198794 (Version 1)
Quarter: 2013Q1

REPORT INFORMATION
  Report Type: Spontaneous
  Country: GB (occurrence: GB)
  Receive Date: 20130329
  Receipt Date: 20130329
  Transmission Date: 20140127
  Serious: Yes (Other)
  Sender: FDA-Public Use
  Company Number: GB-PFIZER INC-2013097319

PATIENT
  Sex: Male

DRUGS (1)
  1. ZYVOX [Suspect]
     Route: 042

REACTIONS (3)
  - Neoplasm malignant [Unknown]
  - Malabsorption [Unknown]
  - Infection [Unknown]
